FAERS Safety Report 23357783 (Version 5)
Quarter: 2024Q3

REPORT INFORMATION
  Report Type: Report from Study
  Country: US (occurrence: US)
  Receive Date: 20240102
  Receipt Date: 20240729
  Transmission Date: 20241017
  Serious: Yes (Hospitalization, Other)
  Sender: UCB
  Company Number: US-UCBSA-2023061468

PATIENT
  Age: 57 Year
  Sex: Female
  Weight: 97.5 kg

DRUGS (2)
  1. CERTOLIZUMAB PEGOL [Suspect]
     Active Substance: CERTOLIZUMAB PEGOL
     Indication: Psoriasis
     Dosage: 400 MILLIGRAM, EV 2 WEEKS(QOW)
     Route: 058
     Dates: start: 20231109
  2. CERTOLIZUMAB PEGOL [Suspect]
     Active Substance: CERTOLIZUMAB PEGOL
     Dosage: 400 MILLIGRAM, EV 2 WEEKS(QOW)
     Route: 058
     Dates: start: 20231123, end: 20231221

REACTIONS (9)
  - Abscess drainage [Recovered/Resolved]
  - Tenosynovitis [Unknown]
  - Wound infection staphylococcal [Unknown]
  - Tendon operation [Unknown]
  - Abscess limb [Recovered/Resolved]
  - Subcutaneous abscess [Recovering/Resolving]
  - Abscess of eyelid [Recovering/Resolving]
  - Impaired work ability [Unknown]
  - Treatment failure [Unknown]

NARRATIVE: CASE EVENT DATE: 20231101
